FAERS Safety Report 11759738 (Version 2)
Quarter: 2015Q4

REPORT INFORMATION
  Report Type: Spontaneous
  Country: US (occurrence: US)
  Receive Date: 20151120
  Receipt Date: 20151218
  Transmission Date: 20160304
  Serious: No
  Sender: FDA-Public Use
  Company Number: US-JNJFOC-20151014954

PATIENT
  Age: 37 Year
  Sex: Female
  Weight: 58.97 kg

DRUGS (2)
  1. MENS ROGAINE EXTRA STRENGTH [Suspect]
     Active Substance: MINOXIDIL
     Route: 061
  2. MENS ROGAINE EXTRA STRENGTH [Suspect]
     Active Substance: MINOXIDIL
     Indication: ALOPECIA
     Dosage: HALF A CAPFUL
     Route: 061
     Dates: start: 201506

REACTIONS (11)
  - Skin exfoliation [Unknown]
  - Wrong patient received medication [Not Recovered/Not Resolved]
  - Application site pain [Unknown]
  - Pruritus [Not Recovered/Not Resolved]
  - Hair texture abnormal [Not Recovered/Not Resolved]
  - Dry skin [Not Recovered/Not Resolved]
  - Medication residue present [Unknown]
  - Alopecia [Not Recovered/Not Resolved]
  - Pollakiuria [Unknown]
  - Hair growth abnormal [Not Recovered/Not Resolved]
  - Wrong technique in product usage process [Not Recovered/Not Resolved]

NARRATIVE: CASE EVENT DATE: 201510
